FAERS Safety Report 5835636-4 (Version None)
Quarter: 2008Q3

REPORT INFORMATION
  Report Type: 
  Country: None (occurrence: None)
  Receive Date: 20080806
  Receipt Date: 20080731
  Transmission Date: 20090109
  Serious: Yes (Death, Other)
  Sender: FDA-Public Use
  Company Number: GB-ASTRAZENECA-2008GB01133

PATIENT
  Age: 81 Year
  Sex: Female

DRUGS (6)
  1. SEROQUEL [Suspect]
     Indication: RESTLESSNESS
     Dosage: MAXIMUM 25MG IN 24 HOURS
     Route: 048
     Dates: start: 20071124
  2. SEROQUEL [Suspect]
     Indication: AGITATION
     Dosage: MAXIMUM 25MG IN 24 HOURS
     Route: 048
     Dates: start: 20071124
  3. BLOOD PRESSURE TABLETS [Concomitant]
     Route: 048
  4. ANTIBIOTICS [Concomitant]
     Indication: CLOSTRIDIUM DIFFICILE COLITIS
  5. ANTIBIOTICS [Concomitant]
     Indication: URINARY TRACT INFECTION
  6. HEMINEVRIN [Concomitant]
     Indication: INSOMNIA

REACTIONS (3)
  - CIRCULATORY COLLAPSE [None]
  - PULMONARY EMBOLISM [None]
  - SEDATION [None]
